FAERS Safety Report 12700717 (Version 1)
Quarter: 2016Q3

REPORT INFORMATION
  Report Type: Report from Study
  Country: CH (occurrence: CH)
  Receive Date: 20160830
  Receipt Date: 20160830
  Transmission Date: 20161109
  Serious: Yes (Other)
  Sender: FDA-Public Use
  Company Number: CH-GILEAD-2016-0223772

PATIENT
  Age: 54 Year
  Sex: Male

DRUGS (7)
  1. VIRAMUNE [Concomitant]
     Active Substance: NEVIRAPINE
     Dosage: 400 MG, UNK
     Route: 065
     Dates: start: 201206
  2. EMTRICITABINE/TENOFOVIR DISOPROXIL FUMARATE [Suspect]
     Active Substance: EMTRICITABINE\TENOFOVIR DISOPROXIL
     Indication: HIV INFECTION
     Dosage: 1 DF, UNK
     Route: 065
     Dates: start: 200712, end: 201101
  3. LISINOPRIL. [Concomitant]
     Active Substance: LISINOPRIL
  4. VIRAMUNE [Concomitant]
     Active Substance: NEVIRAPINE
     Indication: HIV INFECTION
     Dosage: 200 MG, UNK
     Route: 065
     Dates: start: 200712, end: 201206
  5. EMTRICITABINE/TENOFOVIR DISOPROXIL FUMARATE [Suspect]
     Active Substance: EMTRICITABINE\TENOFOVIR DISOPROXIL
     Dosage: 1 DF, UNK
     Route: 065
     Dates: start: 20160708
  6. KIVEXA [Concomitant]
     Active Substance: ABACAVIR SULFATE\LAMIVUDINE
     Indication: HIV INFECTION
     Dosage: UNK
     Dates: start: 201101, end: 201606
  7. NEXIUM [Concomitant]
     Active Substance: ESOMEPRAZOLE MAGNESIUM

REACTIONS (6)
  - Renal tubular disorder [Not Recovered/Not Resolved]
  - Myocardial infarction [Unknown]
  - Non-Hodgkin^s lymphoma [Unknown]
  - Polyneuropathy [Unknown]
  - Blood creatinine increased [Not Recovered/Not Resolved]
  - Blood glucose increased [Unknown]

NARRATIVE: CASE EVENT DATE: 2008
